FAERS Safety Report 11173245 (Version 1)
Quarter: 2015Q2

REPORT INFORMATION
  Report Type: Report from Study
  Country: GB (occurrence: GB)
  Receive Date: 20150608
  Receipt Date: 20150608
  Transmission Date: 20150821
  Serious: Yes (Hospitalization)
  Sender: FDA-Public Use
  Company Number: GB-ABBVIE-15K-167-1400984-00

PATIENT
  Age: 43 Year
  Sex: Female
  Weight: 63 kg

DRUGS (3)
  1. HUMIRA [Suspect]
     Active Substance: ADALIMUMAB
     Indication: PSORIATIC ARTHROPATHY
     Route: 058
     Dates: start: 20141005, end: 20141016
  2. PREDNISOLONE. [Concomitant]
     Active Substance: PREDNISOLONE
     Indication: PRODUCT USED FOR UNKNOWN INDICATION
  3. PREDNISOLONE. [Concomitant]
     Active Substance: PREDNISOLONE
     Dosage: DOSE INCREASED

REACTIONS (3)
  - Rheumatoid arthritis [Unknown]
  - Urine abnormality [Unknown]
  - Pyelonephritis [Unknown]

NARRATIVE: CASE EVENT DATE: 201411
